FAERS Safety Report 20390021 (Version 1)
Quarter: 2022Q1

REPORT INFORMATION
  Report Type: Spontaneous
  Country: FR (occurrence: FR)
  Receive Date: 20220128
  Receipt Date: 20220128
  Transmission Date: 20220423
  Serious: Yes (Hospitalization)
  Sender: FDA-Public Use
  Company Number: None

PATIENT
  Age: 75 Year
  Sex: Male
  Weight: 89 kg

DRUGS (1)
  1. DULOXETINE [Suspect]
     Active Substance: DULOXETINE
     Indication: Depression
     Dosage: DULOXETINE HYDROCHLORIDE,UNIT DOSE:30MG
     Route: 048
     Dates: start: 202104, end: 202105

REACTIONS (2)
  - Extrapyramidal disorder [Recovered/Resolved]
  - Cerebellar syndrome [Recovered/Resolved]
